FAERS Safety Report 4325213-9 (Version None)
Quarter: 2004Q1

REPORT INFORMATION
  Report Type: 
  Country: None (occurrence: None)
  Receive Date: 20040323
  Receipt Date: 20031223
  Transmission Date: 20041129
  Serious: No
  Sender: FDA-Public Use
  Company Number: USA031255052

PATIENT
  Sex: Male

DRUGS (13)
  1. CIALIS [Suspect]
     Indication: ERECTILE DYSFUNCTION
     Dosage: 10 MG/AS NEEDED
     Dates: start: 20031213
  2. LASIX [Concomitant]
  3. MONOPRIL [Concomitant]
  4. LANOXIN [Concomitant]
  5. COUMADIN [Concomitant]
  6. FLOMAX ^BOEHRINGER INGELHEIM^ (TAMSULOSIN HYDROCHLORIDE) [Concomitant]
  7. PROSCAR [Concomitant]
  8. ZOCOR [Concomitant]
  9. ZANTAC [Concomitant]
  10. VALIUM [Concomitant]
  11. VITAMIN B-12 [Concomitant]
  12. TESTOSTERONE [Concomitant]
  13. CYCLOBENZAPRINE HCL [Concomitant]

REACTIONS (5)
  - BLOOD PRESSURE DECREASED [None]
  - INSOMNIA [None]
  - MYALGIA [None]
  - PAIN IN EXTREMITY [None]
  - SOMNOLENCE [None]
